FAERS Safety Report 7799803-5 (Version None)
Quarter: 2011Q4

REPORT INFORMATION
  Report Type: 
  Country: None (occurrence: None)
  Receive Date: 20111006
  Receipt Date: 20111003
  Transmission Date: 20120403
  Serious: Yes (Hospitalization, Other)
  Sender: FDA-Public Use
  Company Number: JP-ABBOTT-10P-087-0693418-00

PATIENT
  Sex: Male
  Weight: 42 kg

DRUGS (13)
  1. NATURAL ALUMINUM SILICATE [Concomitant]
     Indication: CROHN'S DISEASE
     Route: 048
  2. HUMIRA [Suspect]
     Indication: CROHN'S DISEASE
     Route: 058
     Dates: start: 20101206, end: 20101206
  3. HUMIRA [Suspect]
     Route: 058
     Dates: start: 20110103
  4. MESALAMINE [Concomitant]
     Indication: CROHN'S DISEASE
     Route: 048
     Dates: start: 20101108, end: 20101228
  5. MESALAMINE [Concomitant]
     Dates: start: 20101229
  6. AZATHIOPRINE [Concomitant]
     Indication: CROHN'S DISEASE
     Route: 048
  7. ENTERAL NUTRITION THERAPY [Concomitant]
     Indication: CROHN'S DISEASE
  8. LOPERAMIDE HCL [Concomitant]
     Indication: CROHN'S DISEASE
     Route: 048
  9. ALBUMIN TANNATE [Concomitant]
     Indication: CROHN'S DISEASE
     Route: 048
  10. BIFIDOBACTERIUM [Concomitant]
     Indication: CROHN'S DISEASE
     Route: 048
  11. HUMIRA [Suspect]
     Route: 058
     Dates: start: 20101220, end: 20101220
  12. NIZATIDINE [Concomitant]
     Indication: CROHN'S DISEASE
     Route: 048
  13. POTASSIUM L-ASPARTATE [Concomitant]
     Indication: CROHN'S DISEASE
     Route: 048

REACTIONS (4)
  - TETANY [None]
  - BLOOD MAGNESIUM DECREASED [None]
  - HYPOCALCAEMIA [None]
  - BLOOD POTASSIUM DECREASED [None]
